FAERS Safety Report 22265528 (Version 2)
Quarter: 2023Q2

REPORT INFORMATION
  Report Type: Spontaneous
  Country: NO (occurrence: NO)
  Receive Date: 20230428
  Receipt Date: 20230525
  Transmission Date: 20230721
  Serious: Yes (Other)
  Sender: FDA-Public Use
  Company Number: NO-ROCHE-3330123

PATIENT
  Age: 24 Year
  Sex: Male
  Weight: 69 kg

DRUGS (27)
  1. VINCRISTINE SULFATE [Suspect]
     Active Substance: VINCRISTINE SULFATE
     Indication: Burkitt^s lymphoma
     Dosage: UNK
     Route: 065
     Dates: start: 20220610, end: 20221014
  2. VINCRISTINE SULFATE [Suspect]
     Active Substance: VINCRISTINE SULFATE
     Dosage: UNK
     Route: 065
     Dates: start: 20230412, end: 20230413
  3. METHOTREXATE [Suspect]
     Active Substance: METHOTREXATE
     Indication: Burkitt^s lymphoma
     Dosage: UNK
     Route: 065
     Dates: start: 20220610, end: 20221014
  4. METHOTREXATE [Suspect]
     Active Substance: METHOTREXATE
     Dosage: UNK
     Route: 065
     Dates: start: 20230118, end: 20230324
  5. METHOTREXATE [Suspect]
     Active Substance: METHOTREXATE
     Dosage: UNK
     Route: 065
     Dates: start: 20230412, end: 20230413
  6. DOXORUBICIN HYDROCHLORIDE [Suspect]
     Active Substance: DOXORUBICIN HYDROCHLORIDE
     Indication: Burkitt^s lymphoma
     Dosage: UNK
     Route: 065
     Dates: start: 20220610, end: 20221014
  7. DOXORUBICIN HYDROCHLORIDE [Suspect]
     Active Substance: DOXORUBICIN HYDROCHLORIDE
     Dosage: UNK
     Route: 065
     Dates: start: 20230412, end: 20230413
  8. RITUXIMAB [Suspect]
     Active Substance: RITUXIMAB
     Indication: Burkitt^s lymphoma
     Dosage: UNK
     Route: 065
     Dates: start: 20220610, end: 20221014
  9. RITUXIMAB [Suspect]
     Active Substance: RITUXIMAB
     Dosage: UNK
     Dates: start: 20230118, end: 20230324
  10. CISPLATIN [Suspect]
     Active Substance: CISPLATIN
     Indication: Burkitt^s lymphoma
     Dosage: UNK
     Route: 065
     Dates: start: 20220610, end: 20221014
  11. CISPLATIN [Suspect]
     Active Substance: CISPLATIN
     Dosage: UNK
     Dates: start: 20230118, end: 20230324
  12. CYTARABINE [Suspect]
     Active Substance: CYTARABINE
     Indication: Burkitt^s lymphoma
     Dosage: UNK
     Route: 065
     Dates: start: 20220610, end: 20221014
  13. CYTARABINE [Suspect]
     Active Substance: CYTARABINE
     Dosage: UNK
     Dates: start: 20230118, end: 20230324
  14. DEXAMETHASONE [Suspect]
     Active Substance: DEXAMETHASONE
     Indication: Burkitt^s lymphoma
     Dosage: UNK
     Route: 065
     Dates: start: 20220610, end: 20221014
  15. DEXAMETHASONE [Suspect]
     Active Substance: DEXAMETHASONE
     Dosage: UNK
     Dates: start: 20230118, end: 20230324
  16. DEXAMETHASONE [Suspect]
     Active Substance: DEXAMETHASONE
     Dosage: UNK
     Dates: start: 20230412, end: 20230413
  17. VINDESINE [Suspect]
     Active Substance: VINDESINE
     Indication: Burkitt^s lymphoma
     Dosage: UNK
     Route: 065
     Dates: start: 20220610, end: 20221014
  18. CYCLOPHOSPHAMIDE [Suspect]
     Active Substance: CYCLOPHOSPHAMIDE
     Indication: Burkitt^s lymphoma
     Dosage: UNK
     Route: 065
     Dates: start: 20220610, end: 20221014
  19. CYCLOPHOSPHAMIDE [Suspect]
     Active Substance: CYCLOPHOSPHAMIDE
     Dosage: UNK
     Route: 065
     Dates: start: 20230412, end: 20230413
  20. IFOSFAMIDE [Suspect]
     Active Substance: IFOSFAMIDE
     Indication: Burkitt^s lymphoma
     Dosage: UNK
     Route: 065
     Dates: start: 20220610, end: 20221014
  21. IFOSFAMIDE [Suspect]
     Active Substance: IFOSFAMIDE
     Dosage: UNK
     Route: 065
     Dates: start: 20230118, end: 20230324
  22. ETOPOSIDE [Suspect]
     Active Substance: ETOPOSIDE
     Indication: Burkitt^s lymphoma
     Dosage: UNK
     Route: 065
     Dates: start: 20220610, end: 20221014
  23. ETOPOSIDE [Suspect]
     Active Substance: ETOPOSIDE
     Dosage: UNK
     Route: 065
     Dates: start: 20230118, end: 20230324
  24. ETOPOSIDE [Suspect]
     Active Substance: ETOPOSIDE
     Dosage: UNK
     Route: 065
     Dates: start: 20230412, end: 20230413
  25. CARBOPLATIN [Suspect]
     Active Substance: CARBOPLATIN
     Indication: Burkitt^s lymphoma
     Dosage: UNK
     Route: 065
     Dates: start: 20230118, end: 20230324
  26. GAZYVA [Suspect]
     Active Substance: OBINUTUZUMAB
     Indication: Burkitt^s lymphoma
     Dosage: UNK
     Route: 042
     Dates: start: 20220610, end: 20221014
  27. GAZYVA [Suspect]
     Active Substance: OBINUTUZUMAB
     Dosage: UNK
     Route: 042
     Dates: start: 20230412, end: 20230413

REACTIONS (3)
  - Gastrointestinal disorder [Unknown]
  - Blood lactate dehydrogenase increased [Unknown]
  - Off label use [Unknown]

NARRATIVE: CASE EVENT DATE: 20220610
